FAERS Safety Report 7654075-7 (Version None)
Quarter: 2011Q3

REPORT INFORMATION
  Report Type: 
  Country: None (occurrence: None)
  Receive Date: 20110803
  Receipt Date: 20110721
  Transmission Date: 20111222
  Serious: Yes (Hospitalization, Other)
  Sender: FDA-Public Use
  Company Number: PHHY2011FR65984

PATIENT
  Sex: Male

DRUGS (5)
  1. GLEEVEC [Suspect]
     Dosage: 200 MG, DAILY
     Dates: start: 20110628
  2. URSOLVAN [Concomitant]
     Dates: start: 20110701
  3. GLEEVEC [Suspect]
     Dosage: 400 MG, QD
     Dates: start: 20110427, end: 20110603
  4. URSOLVAN [Concomitant]
     Dates: start: 20110604
  5. VITAMIN K TAB [Concomitant]
     Dates: start: 20110609

REACTIONS (14)
  - BLOOD CREATININE INCREASED [None]
  - ASPARTATE AMINOTRANSFERASE INCREASED [None]
  - GAMMA-GLUTAMYLTRANSFERASE INCREASED [None]
  - JAUNDICE [None]
  - PROTHROMBIN LEVEL DECREASED [None]
  - CYTOLYTIC HEPATITIS [None]
  - ALANINE AMINOTRANSFERASE INCREASED [None]
  - PYREXIA [None]
  - BLOOD ALKALINE PHOSPHATASE INCREASED [None]
  - CHOLESTASIS [None]
  - BLOOD BILIRUBIN INCREASED [None]
  - GALLBLADDER DISORDER [None]
  - INFLAMMATION [None]
  - BILIRUBIN CONJUGATED INCREASED [None]
